FAERS Safety Report 5147543-3 (Version None)
Quarter: 2006Q4

REPORT INFORMATION
  Report Type: 
  Country: None (occurrence: None)
  Receive Date: 20061106
  Receipt Date: 20061024
  Transmission Date: 20070319
  Serious: Yes (Other)
  Sender: FDA-Public Use
  Company Number: 2006130427

PATIENT
  Age: 21 Year
  Sex: Female
  Weight: 107.5025 kg

DRUGS (1)
  1. DIFLUCAN [Suspect]
     Indication: VULVOVAGINAL MYCOTIC INFECTION
     Dosage: 150 MG (150 MG)
     Route: 048
     Dates: start: 20061019, end: 20061019

REACTIONS (2)
  - DRUG SCREEN FALSE POSITIVE [None]
  - URINE AMPHETAMINE POSITIVE [None]
